FAERS Safety Report 23718305 (Version 1)
Quarter: 2024Q2

REPORT INFORMATION
  Report Type: Spontaneous
  Country: US (occurrence: None)
  Receive Date: 20240406
  Receipt Date: 20240406
  Transmission Date: 20240716
  Serious: No
  Sender: FDA-Public Use
  Company Number: None

PATIENT
  Age: 84 Year
  Sex: Female
  Weight: 72 kg

DRUGS (3)
  1. CLONIDINE [Suspect]
     Active Substance: CLONIDINE
     Indication: Hypertension
     Dosage: 1 PATCH WEEKLY TRANSDERMAL
     Route: 062
  2. DEVICE [Concomitant]
     Active Substance: DEVICE
  3. BLOOD GLUCOSE MONITOR [Concomitant]

REACTIONS (4)
  - Application site pruritus [None]
  - Application site burn [None]
  - Rash papular [None]
  - Application site reaction [None]
